FAERS Safety Report 24872506 (Version 1)
Quarter: 2025Q1

REPORT INFORMATION
  Report Type: Report from Study
  Country: US (occurrence: US)
  Receive Date: 20250122
  Receipt Date: 20250122
  Transmission Date: 20250409
  Serious: No
  Sender: SUNOVION
  Company Number: US-SMPA-2025SPA000235AA

PATIENT

DRUGS (5)
  1. ORGOVYX [Suspect]
     Active Substance: RELUGOLIX
     Indication: Prostate cancer
     Dosage: 360 MG, SINGLE
     Route: 048
     Dates: start: 20241129, end: 20241129
  2. ORGOVYX [Suspect]
     Active Substance: RELUGOLIX
     Dosage: 120 MG, QD
     Route: 048
     Dates: start: 20241130
  3. ATORVASTATIN [Concomitant]
     Active Substance: ATORVASTATIN
  4. CELLCEPT [Concomitant]
     Active Substance: MYCOPHENOLATE MOFETIL
  5. XARELTO [Concomitant]
     Active Substance: RIVAROXABAN

REACTIONS (1)
  - Fatigue [Unknown]
